FAERS Safety Report 11872062 (Version 2)
Quarter: 2016Q1

REPORT INFORMATION
  Report Type: Spontaneous
  Country: JP (occurrence: JP)
  Receive Date: 20151228
  Receipt Date: 20160127
  Transmission Date: 20160526
  Serious: No
  Sender: FDA-Public Use
  Company Number: JP-ELI_LILLY_AND_COMPANY-JP201512001604

PATIENT
  Age: 5 Year
  Sex: Male

DRUGS (2)
  1. ADCIRCA [Suspect]
     Active Substance: TADALAFIL
     Indication: PRODUCT USED FOR UNKNOWN INDICATION
     Dosage: 13 MG, QD
     Route: 048
     Dates: start: 201404, end: 20151203
  2. CLARITHROMYCIN. [Suspect]
     Active Substance: CLARITHROMYCIN
     Indication: CHRONIC SINUSITIS
     Dosage: UNK
     Route: 048
     Dates: start: 20151202, end: 20151203

REACTIONS (5)
  - Off label use [Recovered/Resolved]
  - Eye discharge [Recovered/Resolved]
  - Chronic sinusitis [Unknown]
  - Eyelid oedema [Recovered/Resolved]
  - Wrong technique in product usage process [Unknown]

NARRATIVE: CASE EVENT DATE: 20151202
